FAERS Safety Report 17953599 (Version 4)
Quarter: 2020Q3

REPORT INFORMATION
  Report Type: Report from Study
  Country: BE (occurrence: BE)
  Receive Date: 20200628
  Receipt Date: 20200807
  Transmission Date: 20201103
  Serious: Yes (Hospitalization, Other)
  Sender: FDA-Public Use
  Company Number: BE-PFIZER INC-2020240934

PATIENT
  Age: 26 Year
  Sex: Male
  Weight: 71 kg

DRUGS (16)
  1. DIFLUCAN [Suspect]
     Active Substance: FLUCONAZOLE
     Dosage: 200 MG, 1X/DAY
     Route: 065
     Dates: end: 20200120
  2. ICLUSIG [Interacting]
     Active Substance: PONATINIB
     Indication: CHRONIC MYELOID LEUKAEMIA
     Dosage: 45 MG, 1X/DAY
     Route: 048
     Dates: start: 20200110, end: 20200119
  3. NEORAL [Concomitant]
     Active Substance: CYCLOSPORINE
     Dosage: 75 MILLIGRAM, QAM / 100 MILLIGRAM, QPM
     Route: 065
     Dates: start: 20200131, end: 20200219
  4. FOLAVIT [Concomitant]
     Active Substance: FOLIC ACID
     Dosage: 4 MG, 1X/DAY
     Route: 065
  5. MOVICOL [Concomitant]
     Active Substance: POLYETHYLENE GLYCOL 3350\POTASSIUM CHLORIDE\SODIUM BICARBONATE\SODIUM CHLORIDE
     Dosage: UNK
     Route: 065
  6. EUSAPRIM [SULFAMETHOXAZOLE;TRIMETHOPRIM] [Concomitant]
     Active Substance: SULFAMETHOXAZOLE\TRIMETHOPRIM
     Dosage: UNK, 3X/WEEK
     Route: 065
  7. BELLOZAL [Concomitant]
     Active Substance: BILASTINE
     Dosage: 20 MG, BID (880 MG CUMULATIVE DOSE TO FIRST REACTION)
     Route: 065
     Dates: start: 20200120, end: 20200210
  8. PERIO AID [CHLORHEXIDINE GLUCONATE] [Concomitant]
     Dosage: UNK, 2X/DAY
     Route: 065
  9. STILNOCT [Concomitant]
     Active Substance: ZOLPIDEM TARTRATE
     Dosage: 10 MG, 1X/DAY
     Route: 065
  10. LITICAN [ALIZAPRIDE] [Concomitant]
     Dosage: 50 MG, 4X/DAY
     Route: 065
     Dates: start: 20200129
  11. ICLUSIG [Interacting]
     Active Substance: PONATINIB
     Dosage: 15 MG, 1X/DAY
     Route: 048
     Dates: start: 202001
  12. PANTOMED [DEXPANTHENOL] [Concomitant]
     Dosage: 20 MG, 1X/DAY
     Route: 065
  13. LITICAN [ALIZAPRIDE] [Concomitant]
     Dosage: 50 MG, 3X/DAY
     Route: 065
     Dates: start: 20200120
  14. NEORAL [Concomitant]
     Active Substance: CYCLOSPORINE
     Dosage: 50 MG, 2X/DAY
     Route: 065
     Dates: end: 202001
  15. IMODIUM [Concomitant]
     Active Substance: LOPERAMIDE HYDROCHLORIDE
     Dosage: UNK
     Route: 065
     Dates: start: 20200210
  16. NEORAL [Concomitant]
     Active Substance: CYCLOSPORINE
     Dosage: 75 MG, 2X/DAY
     Route: 065
     Dates: start: 20200120, end: 202001

REACTIONS (7)
  - Pyrexia [Recovered/Resolved]
  - Diarrhoea [Not Recovered/Not Resolved]
  - Rash [Recovered/Resolved]
  - Hepatic function abnormal [Recovered/Resolved]
  - Drug interaction [Unknown]
  - Hepatitis [Not Recovered/Not Resolved]
  - Vomiting [Recovered/Resolved]

NARRATIVE: CASE EVENT DATE: 20200116
